FAERS Safety Report 23432413 (Version 1)
Quarter: 2024Q1

REPORT INFORMATION
  Report Type: Spontaneous
  Country: US (occurrence: US)
  Receive Date: 20240123
  Receipt Date: 20240123
  Transmission Date: 20240410
  Serious: No
  Sender: FDA-Public Use
  Company Number: US-JNJFOC-20240156123

PATIENT
  Sex: Male

DRUGS (5)
  1. RISPERDAL [Suspect]
     Active Substance: RISPERIDONE
     Indication: Aggression
     Route: 048
     Dates: start: 2009
  2. RISPERDAL [Suspect]
     Active Substance: RISPERIDONE
     Indication: Anger
  3. RISPERDAL [Suspect]
     Active Substance: RISPERIDONE
     Indication: Adjustment disorder with mixed disturbance of emotion and conduct
  4. RISPERDAL [Suspect]
     Active Substance: RISPERIDONE
     Indication: Affective disorder
  5. RISPERDAL [Suspect]
     Active Substance: RISPERIDONE
     Indication: Attention deficit hyperactivity disorder

REACTIONS (1)
  - Gynaecomastia [Unknown]
